FAERS Safety Report 6905030-3 (Version None)
Quarter: 2010Q3

REPORT INFORMATION
  Report Type: 
  Country: None (occurrence: None)
  Receive Date: 20100804
  Receipt Date: 20090901
  Transmission Date: 20110219
  Serious: No
  Sender: FDA-Public Use
  Company Number: US-PFIZER INC-2009239336

PATIENT
  Sex: Female

DRUGS (1)
  1. LYRICA [Suspect]
     Indication: DIABETIC NEUROPATHY
     Dosage: FREQUENCY: 2X/DAY, EVERY DAY;

REACTIONS (3)
  - ABDOMINAL PAIN [None]
  - NAUSEA [None]
  - WEIGHT INCREASED [None]
